FAERS Safety Report 12628861 (Version 1)
Quarter: 2016Q3

REPORT INFORMATION
  Report Type: Spontaneous
  Country: US (occurrence: None)
  Receive Date: 20160805
  Receipt Date: 20160805
  Transmission Date: 20161109
  Serious: Yes (Hospitalization)
  Sender: FDA-Public Use
  Company Number: None

PATIENT
  Age: 74 Year
  Sex: Male
  Weight: 76.2 kg

DRUGS (1)
  1. LEVOFLOXACIN 500MG TAB, 500 MG [Suspect]
     Active Substance: LEVOFLOXACIN
     Indication: DIVERTICULITIS
     Route: 048
     Dates: start: 20160722, end: 20160727

REACTIONS (7)
  - Dyspnoea [None]
  - Asthenia [None]
  - Dizziness [None]
  - Confusional state [None]
  - Peripheral coldness [None]
  - Gait disturbance [None]
  - Hypoaesthesia [None]

NARRATIVE: CASE EVENT DATE: 20160724
